FAERS Safety Report 9903523 (Version 2)
Quarter: 2014Q1

REPORT INFORMATION
  Report Type: Spontaneous
  Country: US (occurrence: US)
  Receive Date: 20140217
  Receipt Date: 20140217
  Transmission Date: 20141002
  Serious: No
  Sender: FDA-Public Use
  Company Number: US-GILEAD-2012-0052687

PATIENT
  Age: 64 Year
  Sex: Male

DRUGS (3)
  1. LETAIRIS [Suspect]
     Indication: PULMONARY HYPERTENSION
     Dosage: 5 MG, UNK
     Route: 048
     Dates: start: 20120302, end: 20120412
  2. LETAIRIS [Suspect]
     Indication: LIVER DISORDER
  3. LETAIRIS [Suspect]
     Indication: HEPATOPULMONARY SYNDROME

REACTIONS (3)
  - Hepatic enzyme increased [Unknown]
  - Dyspnoea [Unknown]
  - Oedema [Unknown]
